FAERS Safety Report 24606541 (Version 1)
Quarter: 2024Q4

REPORT INFORMATION
  Report Type: Spontaneous
  Country: US (occurrence: US)
  Receive Date: 20241112
  Receipt Date: 20241112
  Transmission Date: 20250115
  Serious: Yes (Other)
  Sender: Kanchan Healthcare
  Company Number: US-Kanchan Healthcare INC-2164813

PATIENT
  Age: 73 Year
  Sex: Female

DRUGS (5)
  1. ETHAMBUTOL HYDROCHLORIDE [Suspect]
     Active Substance: ETHAMBUTOL HYDROCHLORIDE
     Indication: Mycobacterium avium complex infection
     Dates: start: 2006
  2. AZITHROMYCIN [Suspect]
     Active Substance: AZITHROMYCIN
     Dates: start: 20240415
  3. CLARITHROMYCIN [Concomitant]
     Active Substance: CLARITHROMYCIN
     Dates: start: 2006
  4. RIFAMPIN [Concomitant]
     Active Substance: RIFAMPIN
     Dates: start: 2006
  5. ARIKAYCE [Suspect]
     Active Substance: AMIKACIN
     Dates: start: 2024

REACTIONS (2)
  - Deafness [Unknown]
  - Product use in unapproved indication [Unknown]

NARRATIVE: CASE EVENT DATE: 20060101
